FAERS Safety Report 16593430 (Version 1)
Quarter: 2019Q3

REPORT INFORMATION
  Report Type: Spontaneous
  Country: US (occurrence: US)
  Receive Date: 20190718
  Receipt Date: 20190718
  Transmission Date: 20191004
  Serious: Yes (Other)
  Sender: FDA-Public Use
  Company Number: PHHY2019US162413

PATIENT
  Sex: Male

DRUGS (4)
  1. DIGOXIN. [Suspect]
     Active Substance: DIGOXIN
     Indication: FOETAL EXPOSURE DURING PREGNANCY
     Route: 064
  2. FLECAINIDE [Suspect]
     Active Substance: FLECAINIDE
     Indication: FOETAL EXPOSURE DURING PREGNANCY
     Route: 064
  3. SOTALOL. [Suspect]
     Active Substance: SOTALOL
     Indication: FOETAL EXPOSURE DURING PREGNANCY
     Route: 064
  4. AMIODARONE [Suspect]
     Active Substance: AMIODARONE
     Indication: FOETAL EXPOSURE DURING PREGNANCY
     Dosage: MATERNAL DOSE:LOADING DOSE OF 800 MG ON DAY 1, FOLLOWED BY 400 MG TWICE DAILY (BID) ON DAY 2, THEN 2
     Route: 064

REACTIONS (5)
  - Hypothyroidism [Recovered/Resolved]
  - Premature baby [Unknown]
  - Supraventricular tachycardia [Unknown]
  - Hydrops foetalis [Unknown]
  - Foetal exposure during pregnancy [Unknown]
